FAERS Safety Report 6814658-0 (Version None)
Quarter: 2010Q2

REPORT INFORMATION
  Report Type: 
  Country: None (occurrence: None)
  Receive Date: 20100629
  Receipt Date: 20100617
  Transmission Date: 20101027
  Serious: Yes (Other)
  Sender: FDA-Public Use
  Company Number: 2010AP001046

PATIENT
  Age: 28 Year
  Sex: Female

DRUGS (2)
  1. CLARITHROMYCIN [Suspect]
     Indication: VAGINITIS BACTERIAL
     Dates: start: 20100420
  2. LAMICTAL [Suspect]
     Indication: EPILEPSY
     Dosage: 100 MG; TAB; PO; QD
     Route: 048

REACTIONS (3)
  - AURA [None]
  - CONVULSION [None]
  - HEADACHE [None]
